FAERS Safety Report 14391360 (Version 2)
Quarter: 2018Q3

REPORT INFORMATION
  Report Type: Report from Study
  Country: CA (occurrence: CA)
  Receive Date: 20180116
  Receipt Date: 20180824
  Transmission Date: 20181010
  Serious: Yes (Other)
  Sender: FDA-Public Use
  Company Number: CA-CONCORDIA PHARMACEUTICALS INC.-GSH201801-000139

PATIENT
  Age: 69 Year
  Sex: Male

DRUGS (4)
  1. LEFLUNOMIDE. [Concomitant]
     Active Substance: LEFLUNOMIDE
  2. METHOTREXATE SODIUM. [Suspect]
     Active Substance: METHOTREXATE SODIUM
     Indication: PRODUCT USED FOR UNKNOWN INDICATION
     Dosage: DURATION: 2 YEARS 6 MONTHS 18 DAYS
     Route: 065
     Dates: start: 20140819, end: 20170308
  3. PLAQUENIL [Suspect]
     Active Substance: HYDROXYCHLOROQUINE SULFATE
     Indication: PRODUCT USED FOR UNKNOWN INDICATION
     Route: 048
     Dates: start: 19960704
  4. ENBREL [Suspect]
     Active Substance: ETANERCEPT
     Indication: RHEUMATOID ARTHRITIS
     Route: 058
     Dates: start: 20080704

REACTIONS (6)
  - Lymphopenia [Unknown]
  - Treatment failure [Unknown]
  - Hypersensitivity [Unknown]
  - Rash [Unknown]
  - Renal impairment [Unknown]
  - Thrombocytopenia [Unknown]
